FAERS Safety Report 9521131 (Version 8)
Quarter: 2013Q4

REPORT INFORMATION
  Report Type: Spontaneous
  Country: ES (occurrence: ES)
  Receive Date: 20130913
  Receipt Date: 20131226
  Transmission Date: 20140711
  Serious: Yes (Other)
  Sender: FDA-Public Use
  Company Number: ES-AMGEN-ESPSP2013064176

PATIENT
  Age: 52 Year
  Sex: Female

DRUGS (11)
  1. ENBREL [Suspect]
     Indication: PSORIATIC ARTHROPATHY
     Dosage: 50 MG, WEEKLY
     Route: 058
     Dates: start: 201307, end: 201311
  2. ENBREL [Suspect]
     Dosage: UNK
     Route: 065
  3. METHOTREXATE SODIUM [Suspect]
     Indication: PSORIATIC ARTHROPATHY
     Dosage: 20 MG, WEEKLY
     Route: 048
     Dates: start: 201207, end: 201305
  4. METHOTREXATE SODIUM [Suspect]
     Dosage: UNK
     Route: 065
  5. METHOTREXATE SODIUM [Suspect]
     Dosage: UNK
     Route: 065
  6. LORAZEPAM [Concomitant]
     Dosage: 1 MG, 3X/DAY
  7. VENLAFAXINE [Concomitant]
     Indication: DEPRESSION
     Dosage: 150 MG, 1X/DAY
  8. SOMNOVIT [Concomitant]
     Indication: SLEEP DISORDER
     Dosage: 1 MG, 1X/DAY
  9. SALAZOPYRIN [Concomitant]
     Dosage: 2 IN THE MORNING AND 2 AT NIGHT
  10. OMEPRAZOLE [Concomitant]
     Indication: PROPHYLAXIS
     Dosage: UNK, 1X/DAY
  11. VOLTAREN                           /00372301/ [Concomitant]
     Dosage: UNK, 2X/DAY

REACTIONS (12)
  - Psoriatic arthropathy [Not Recovered/Not Resolved]
  - Headache [Not Recovered/Not Resolved]
  - Gingival pain [Recovering/Resolving]
  - Arthralgia [Not Recovered/Not Resolved]
  - Dysgeusia [Not Recovered/Not Resolved]
  - Toothache [Recovering/Resolving]
  - Oral pain [Recovering/Resolving]
  - Condition aggravated [Not Recovered/Not Resolved]
  - Pain [Not Recovered/Not Resolved]
  - Drug ineffective [Not Recovered/Not Resolved]
  - Tooth infection [Recovered/Resolved]
  - Injection site erythema [Recovered/Resolved]
